FAERS Safety Report 6826353-2 (Version None)
Quarter: 2010Q3

REPORT INFORMATION
  Report Type: 
  Country: None (occurrence: None)
  Receive Date: 20100709
  Receipt Date: 20100630
  Transmission Date: 20110219
  Serious: Yes (Hospitalization)
  Sender: FDA-Public Use
  Company Number: DE-WYE-H15956910

PATIENT
  Sex: Male
  Weight: 87 kg

DRUGS (2)
  1. TEMSIROLIMUS [Suspect]
     Indication: RENAL CELL CARCINOMA
     Dosage: 25 MG ONCE
     Route: 042
     Dates: start: 20100624
  2. BEVACIZUMAB [Suspect]
     Indication: RENAL CELL CARCINOMA
     Dosage: 870 MG ONCE
     Route: 042
     Dates: start: 20100624

REACTIONS (2)
  - CORONARY ARTERY DISEASE [None]
  - SYNCOPE [None]
